FAERS Safety Report 9737205 (Version 1)
Quarter: 2013Q4

REPORT INFORMATION
  Report Type: Spontaneous
  Country: JP (occurrence: JP)
  Receive Date: 20131206
  Receipt Date: 20131206
  Transmission Date: 20140711
  Serious: Yes (Death)
  Sender: FDA-Public Use
  Company Number: JP-OTSUKA-JP-2013-15697

PATIENT
  Sex: 0

DRUGS (2)
  1. PLETAAL [Suspect]
     Indication: ARTERIAL INJURY
     Dosage: UNK
     Route: 048
  2. ASPIRIN [Suspect]
     Indication: ARTERIAL INJURY
     Dosage: UNK
     Route: 048

REACTIONS (1)
  - Death [Fatal]
